FAERS Safety Report 11486658 (Version 16)
Quarter: 2022Q2

REPORT INFORMATION
  Report Type: Spontaneous
  Country: US (occurrence: US)
  Receive Date: 20150910
  Receipt Date: 20220525
  Transmission Date: 20220720
  Serious: Yes (Other)
  Sender: FDA-Public Use
  Company Number: US-PFIZER INC-2015185480

PATIENT
  Age: 62 Year
  Sex: Male
  Weight: 115.67 kg

DRUGS (17)
  1. LYRICA [Suspect]
     Active Substance: PREGABALIN
     Indication: Fibromyalgia
     Dosage: UNK
     Route: 048
     Dates: start: 2015
  2. LYRICA [Suspect]
     Active Substance: PREGABALIN
     Indication: Neuropathy peripheral
     Dosage: 75 MG, 3X/DAY
     Route: 048
  3. LYRICA [Suspect]
     Active Substance: PREGABALIN
     Indication: Hypoaesthesia
     Dosage: 150 MG, 3X/DAY
     Route: 048
  4. LYRICA [Suspect]
     Active Substance: PREGABALIN
     Indication: Paraesthesia
     Dosage: 150 MG, 1X/DAY
     Route: 048
  5. LYRICA [Suspect]
     Active Substance: PREGABALIN
     Indication: Neuralgia
     Dosage: 75 MG, 2X/DAY
     Route: 048
  6. LYRICA [Suspect]
     Active Substance: PREGABALIN
     Dosage: 2 DF, UNK
     Route: 048
  7. LYRICA [Suspect]
     Active Substance: PREGABALIN
     Dosage: 150 MG, 3X/DAY
     Route: 048
  8. LYRICA [Suspect]
     Active Substance: PREGABALIN
     Dosage: 75 MG, 3X/DAY
     Route: 048
  9. LYRICA [Suspect]
     Active Substance: PREGABALIN
     Dosage: 75 MG, 3X/DAY
     Route: 048
  10. LYRICA [Suspect]
     Active Substance: PREGABALIN
     Dosage: 300 MG, 3X/DAY (QTY: 270, REFILL: 3)
     Route: 048
  11. LYRICA [Suspect]
     Active Substance: PREGABALIN
     Dosage: UNK
  12. ACTEMRA [Concomitant]
     Active Substance: TOCILIZUMAB
     Indication: Arthritis
     Dosage: UNK, WEEKLY (165MG/0.9ML ONCE A WEEK)
     Dates: start: 2013
  13. WARFARIN [Concomitant]
     Active Substance: WARFARIN
     Indication: Anticoagulant therapy
     Dosage: 7.5 MG, 1X/DAY
     Dates: start: 2013
  14. WARFARIN [Concomitant]
     Active Substance: WARFARIN
     Indication: Atrial fibrillation
  15. VITAMIN D [Concomitant]
     Active Substance: VITAMIN D NOS
     Indication: Arthropathy
     Dosage: 2000 IU
  16. VITAMIN D [Concomitant]
     Active Substance: VITAMIN D NOS
     Dosage: 1 DF, 1X/DAY
     Dates: start: 2015
  17. VALIUM [Concomitant]
     Active Substance: DIAZEPAM
     Dosage: UNK

REACTIONS (23)
  - Chest pain [Unknown]
  - Chest injury [Unknown]
  - Fall [Unknown]
  - Drug ineffective [Unknown]
  - Product physical issue [Unknown]
  - Prescribed overdose [Unknown]
  - Intentional product misuse [Unknown]
  - Intentional dose omission [Unknown]
  - Pain in extremity [Not Recovered/Not Resolved]
  - Peripheral swelling [Unknown]
  - Hypoaesthesia [Not Recovered/Not Resolved]
  - Joint injury [Unknown]
  - Contusion [Unknown]
  - Dysphagia [Unknown]
  - Dyspnoea [Not Recovered/Not Resolved]
  - Hypopnoea [Not Recovered/Not Resolved]
  - Dizziness [Not Recovered/Not Resolved]
  - Loss of personal independence in daily activities [Unknown]
  - Paraesthesia [Not Recovered/Not Resolved]
  - Dysgeusia [Unknown]
  - Diabetic neuropathy [Unknown]
  - Neck pain [Not Recovered/Not Resolved]
  - Sleep apnoea syndrome [Unknown]

NARRATIVE: CASE EVENT DATE: 20151101
